FAERS Safety Report 9358828 (Version 2)
Quarter: 2013Q3

REPORT INFORMATION
  Report Type: Report from Study
  Country: DE (occurrence: DE)
  Receive Date: 20130620
  Receipt Date: 20130903
  Transmission Date: 20140515
  Serious: Yes (Hospitalization, Other)
  Sender: FDA-Public Use
  Company Number: DE-ABBOTT-13P-062-1104431-00

PATIENT
  Age: 50 Year
  Sex: Male
  Weight: 108 kg

DRUGS (4)
  1. HUMIRA [Suspect]
     Indication: RHEUMATOID ARTHRITIS
     Route: 058
     Dates: start: 20130118, end: 20130312
  2. HUMIRA [Suspect]
     Route: 058
     Dates: start: 20130430
  3. GLUCOCORTICOIDS [Concomitant]
     Indication: RHEUMATOID ARTHRITIS
     Dosage: 7MG DAILY
  4. L THYROXIN JOD BETA [Concomitant]
     Indication: HYPOTHYROIDISM
     Dosage: 50/150MCG DAILY

REACTIONS (2)
  - Osteoarthritis [Recovered/Resolved]
  - Wound infection [Unknown]
